FAERS Safety Report 8840841 (Version 1)
Quarter: 2012Q4

REPORT INFORMATION
  Report Type: 
  Country: DE (occurrence: DE)
  Receive Date: 20121015
  Receipt Date: 20121015
  Transmission Date: 20130627
  Serious: Yes (Hospitalization)
  Sender: FDA-Public Use
  Company Number: DE-UCBSA-062858

PATIENT
  Age: 82 Year
  Sex: Female
  Weight: 70 kg

DRUGS (12)
  1. KEPPRA [Suspect]
     Indication: PARTIAL SEIZURES
     Route: 048
     Dates: start: 201012, end: 201206
  2. KEPPRA [Suspect]
     Indication: PARTIAL SEIZURES
  3. SIMVASTATIN [Concomitant]
     Indication: CEREBRAL INFARCTION
     Route: 048
     Dates: start: 2009
  4. SIMVASTATIN [Concomitant]
     Indication: HYPERCHOLESTEROLAEMIA
     Route: 048
     Dates: start: 2009
  5. TOREM [Concomitant]
     Indication: HYPERTENSION
     Route: 048
     Dates: start: 201104
  6. BELOC ZOC MITE [Concomitant]
     Indication: HYPERTENSION
     Route: 048
     Dates: start: 201104
  7. BELOC ZOC MITE [Concomitant]
     Indication: ATRIAL FIBRILLATION
     Route: 048
     Dates: start: 201104
  8. RAMIPRIL [Concomitant]
     Indication: HYPERTENSION
     Route: 048
     Dates: start: 201104
  9. FALITHROM [Concomitant]
     Indication: ATRIAL FIBRILLATION
     Dosage: ACCORDING TO INR VALUE
     Route: 048
     Dates: start: 200904
  10. FALITHROM [Concomitant]
     Indication: CEREBRAL INFARCTION
     Dosage: ACCORDING TO INR VALUE
     Route: 048
     Dates: start: 200904
  11. PENTALONG [Concomitant]
     Indication: ANGINA PECTORIS
     Route: 048
     Dates: start: 201104, end: 201203
  12. METAMIZOL [Concomitant]

REACTIONS (6)
  - Hallucination, visual [Recovered/Resolved]
  - Hallucination, auditory [Recovered/Resolved]
  - Partial seizures [Unknown]
  - Infarction [Unknown]
  - Angina pectoris [Unknown]
  - Blood pressure decreased [Unknown]
